FAERS Safety Report 15763882 (Version 2)
Quarter: 2019Q1

REPORT INFORMATION
  Report Type: Spontaneous
  Country: US (occurrence: US)
  Receive Date: 20181227
  Receipt Date: 20190105
  Transmission Date: 20190417
  Serious: No
  Sender: FDA-Public Use
  Company Number: US-BIOGEN-2018BI00671390

PATIENT
  Sex: Female
  Weight: 137.11 kg

DRUGS (1)
  1. TYSABRI [Suspect]
     Active Substance: NATALIZUMAB
     Indication: MULTIPLE SCLEROSIS
     Dosage: INFUSED OVER 1 HOUR
     Route: 042
     Dates: start: 20091005, end: 20180626

REACTIONS (21)
  - Memory impairment [Unknown]
  - Loss of bladder sensation [Unknown]
  - Cognitive disorder [Unknown]
  - Dry skin [Unknown]
  - Skin discolouration [Unknown]
  - Rash [Unknown]
  - Hypoaesthesia [Unknown]
  - Arthralgia [Unknown]
  - Sleep disorder [Unknown]
  - Dysphagia [Unknown]
  - Balance disorder [Unknown]
  - Hot flush [Unknown]
  - Nausea [Unknown]
  - Myalgia [Unknown]
  - Fatigue [Unknown]
  - Pruritus [Unknown]
  - Alopecia [Unknown]
  - Feeling hot [Unknown]
  - Throat tightness [Unknown]
  - Neck pain [Unknown]
  - Dyspnoea [Unknown]
